FAERS Safety Report 7278136-X (Version None)
Quarter: 2011Q1

REPORT INFORMATION
  Report Type: 
  Country: None (occurrence: None)
  Receive Date: 20110207
  Receipt Date: 20110203
  Transmission Date: 20110831
  Serious: Yes (Hospitalization)
  Sender: FDA-Public Use
  Company Number: A0788961A

PATIENT
  Age: 76 Year
  Sex: Female

DRUGS (13)
  1. AVANDIA [Suspect]
     Dosage: 4MG PER DAY
     Route: 048
     Dates: start: 20040201, end: 20070201
  2. PROTONIX [Concomitant]
  3. AVANDAMET [Suspect]
     Route: 048
     Dates: start: 20070101, end: 20070501
  4. CADUET [Concomitant]
  5. HYDROCHLOROTHIAZIDE [Concomitant]
  6. ZOCOR [Concomitant]
  7. GLUCOPHAGE [Concomitant]
  8. DIOVAN [Concomitant]
  9. ARANESP [Concomitant]
  10. DIOVAN [Concomitant]
  11. SYNTHROID [Concomitant]
  12. NORVASC [Concomitant]
  13. LIPITOR [Concomitant]

REACTIONS (3)
  - CEREBRAL INFARCTION [None]
  - ATRIAL FIBRILLATION [None]
  - THROMBOTIC STROKE [None]
